FAERS Safety Report 17474883 (Version 1)
Quarter: 2020Q1

REPORT INFORMATION
  Report Type: Spontaneous
  Country: US (occurrence: US)
  Receive Date: 20200218
  Receipt Date: 20200218
  Transmission Date: 20200409
  Serious: Yes (Other)
  Sender: FDA-Public Use
  Company Number: None

PATIENT
  Age: 65 Year
  Sex: Female
  Weight: 61.69 kg

DRUGS (2)
  1. LATANOPROST 0.005% [Suspect]
     Active Substance: LATANOPROST
     Indication: NORMAL TENSION GLAUCOMA
  2. LATANOPROST 0.005% [Suspect]
     Active Substance: LATANOPROST
     Indication: GLAUCOMA

REACTIONS (7)
  - Giant papillary conjunctivitis [None]
  - Drug hypersensitivity [None]
  - Conjunctival oedema [None]
  - Eye disorder [None]
  - Erythema [None]
  - Eye allergy [None]
  - Punctate keratitis [None]

NARRATIVE: CASE EVENT DATE: 2011
